FAERS Safety Report 6154971-6 (Version None)
Quarter: 2009Q2

REPORT INFORMATION
  Report Type: 
  Country: None (occurrence: None)
  Receive Date: 20090410
  Receipt Date: 20090330
  Transmission Date: 20091009
  Serious: Yes (Other)
  Sender: FDA-Public Use
  Company Number: 2009SP006834

PATIENT
  Sex: Female

DRUGS (1)
  1. DRIXORAL [Suspect]

REACTIONS (5)
  - EYE SWELLING [None]
  - PALPITATIONS [None]
  - PRURITUS [None]
  - RASH [None]
  - SWELLING FACE [None]
